FAERS Safety Report 5255345-2 (Version None)
Quarter: 2007Q1

REPORT INFORMATION
  Report Type: 
  Country: None (occurrence: None)
  Receive Date: 20070228
  Receipt Date: 20070220
  Transmission Date: 20070707
  Serious: Yes (Other)
  Sender: FDA-Public Use
  Company Number: 2007SP003300

PATIENT
  Age: 45 Year
  Sex: Male

DRUGS (3)
  1. CLARITIN [Suspect]
     Indication: RHINITIS SEASONAL
     Dosage: 10 MG; PO
     Route: 048
     Dates: start: 20070204, end: 20070214
  2. CARVEDILOL [Suspect]
     Indication: DRUG USE FOR UNKNOWN INDICATION
     Dosage: PO
     Route: 048
  3. IPD (SUPLATAST TOSILATE) [Suspect]
     Indication: DRUG USE FOR UNKNOWN INDICATION
     Dosage: PO
     Route: 048

REACTIONS (2)
  - ARRHYTHMIA [None]
  - ATRIAL FIBRILLATION [None]
